FAERS Safety Report 7325412 (Version 2)
Quarter: 2013Q3

REPORT INFORMATION
  Report Type: Spontaneous
  Country: None (occurrence: None)
  Receive Date: 20100224
  Receipt Date: 20130715
  Transmission Date: 20140515
  Serious: Yes (Death, Hospitalization)
  Sender: FDA-Public Use
  Company Number: AUR-APL-2010-00411

PATIENT
  Age: 43 Year
  Sex: Male

DRUGS (16)
  1. DIDANOSINE [Suspect]
     Indication: HIV INFECTION
     Dosage: 400MG, DAILY
  2. LAMIVUDINE AND ZIDOVUDINE [Suspect]
     Indication: HIV INFECTION
     Dosage: 150/250MG, BID
  3. STAVUDINE [Suspect]
     Indication: HIV INFECTION
     Dosage: 40MG - BID
  4. EFAVIRENZ [Suspect]
     Indication: HIV INFECTION
     Dosage: 600MG - DAILY
  5. TENOFOVIR [Suspect]
     Indication: HIV INFECTION
     Dosage: 300MG - DAILY ; 300MG - DAILY
  6. LAMIVUDINE [Suspect]
     Indication: HIV INFECTION
     Dosage: 300MG - DAILY
     Dates: start: 200609, end: 200702
  7. EMTRICITABINE [Suspect]
     Indication: HIV INFECTION
     Dosage: 200 MG - DAILY
     Dates: start: 200704
  8. FOSAMPRENAVIR [Suspect]
     Indication: HIV INFECTION
     Dosage: 700 MG - BID
     Dates: start: 200704
  9. RITONAVIR [Suspect]
     Indication: HIV INFECTION
     Dosage: 100 MG - BID
     Dates: start: 200704
  10. DISULFIRAM [Suspect]
     Indication: ALCOHOL ABUSE
     Dosage: 200 MG - DAILY
  11. AMITRIPTYLINE [Suspect]
     Indication: PRODUCT USED FOR UNKNOWN INDICATION
     Dosage: 25 MG - DAILY
  12. NIFEDIPINE [Suspect]
     Indication: HYPERTENSION
     Dosage: 30 MG - BID
  13. GABAPENTIN [Concomitant]
  14. VITAMIN B [Concomitant]
  15. MAGNESIUM [Concomitant]
  16. LORAZEPAM [Concomitant]

REACTIONS (24)
  - Lactic acidosis [None]
  - Confusional state [None]
  - Abdominal pain [None]
  - Somnolence [None]
  - Abdominal distension [None]
  - Hepatomegaly [None]
  - Hepatic cirrhosis [None]
  - Multi-organ failure [None]
  - Malaise [None]
  - Loss of consciousness [None]
  - Hypertension [None]
  - Convulsion [None]
  - Alcohol abuse [None]
  - Hepatitis alcoholic [None]
  - Cholelithiasis [None]
  - Gastritis [None]
  - Oesophageal candidiasis [None]
  - Chronic hepatitis [None]
  - Neuropathy peripheral [None]
  - Tachypnoea [None]
  - Dyspnoea [None]
  - Body temperature decreased [None]
  - Blood creatinine increased [None]
  - Haemoglobin decreased [None]
